FAERS Safety Report 5350487-5 (Version None)
Quarter: 2007Q2

REPORT INFORMATION
  Report Type: 
  Country: None (occurrence: None)
  Receive Date: 20070608
  Receipt Date: 20070529
  Transmission Date: 20071010
  Serious: Yes (Hospitalization)
  Sender: FDA-Public Use
  Company Number: US-BAYER-200711730BCC

PATIENT
  Age: 78 Year
  Sex: Female
  Weight: 64 kg

DRUGS (11)
  1. ONE A DAY WOMEN'S [Suspect]
     Indication: VITAMIN SUPPLEMENTATION
     Route: 048
  2. ASPIRIN [Suspect]
     Indication: DRUG USE FOR UNKNOWN INDICATION
     Route: 048
  3. DITROPAN [Concomitant]
  4. PLAVIX [Concomitant]
  5. DIOVAN [Concomitant]
  6. BUMETANIDE [Concomitant]
  7. VERAPAMIL [Concomitant]
  8. LISINOPRIL [Concomitant]
  9. BETA BLOCKERS [Concomitant]
  10. WARFARIN SODIUM [Concomitant]
  11. CATAPRES [Concomitant]

REACTIONS (4)
  - GASTROENTERITIS VIRAL [None]
  - HEART RATE INCREASED [None]
  - PALPITATIONS [None]
  - VOMITING [None]
